FAERS Safety Report 5391960-3 (Version None)
Quarter: 2007Q3

REPORT INFORMATION
  Report Type: 
  Country: None (occurrence: None)
  Receive Date: 20070720
  Receipt Date: 20070710
  Transmission Date: 20080115
  Serious: Yes (Other)
  Sender: FDA-Public Use
  Company Number: PHHO2007US11591

PATIENT
  Age: 64 Year
  Sex: Male
  Weight: 84.2 kg

DRUGS (1)
  1. IMATINIB MESYLATE [Suspect]
     Indication: GASTROINTESTINAL STROMAL TUMOUR
     Dosage: 400 MG, BID
     Route: 048
     Dates: start: 20000706

REACTIONS (5)
  - BACK PAIN [None]
  - INTERVERTEBRAL DISC DEGENERATION [None]
  - IRRITABILITY [None]
  - LIMB DISCOMFORT [None]
  - MEMORY IMPAIRMENT [None]
